FAERS Safety Report 7069217-4 (Version None)
Quarter: 2010Q4

REPORT INFORMATION
  Report Type: 
  Country: None (occurrence: None)
  Receive Date: 20101028
  Receipt Date: 20101019
  Transmission Date: 20110411
  Serious: Yes (Other)
  Sender: FDA-Public Use
  Company Number: B0681484A

PATIENT
  Sex: Male

DRUGS (1)
  1. AUGMENTIN '125' [Suspect]

REACTIONS (3)
  - FACE OEDEMA [None]
  - LEUKOCYTOSIS [None]
  - OEDEMA PERIPHERAL [None]
